FAERS Safety Report 18474156 (Version 3)
Quarter: 2020Q4

REPORT INFORMATION
  Report Type: Spontaneous
  Country: US (occurrence: US)
  Receive Date: 20201106
  Receipt Date: 20201118
  Transmission Date: 20210114
  Serious: Yes (Other)
  Sender: FDA-Public Use
  Company Number: US-PFIZER INC-2020431427

PATIENT
  Age: 70 Year
  Sex: Female

DRUGS (1)
  1. PHENYTOIN SODIUM. [Suspect]
     Active Substance: PHENYTOIN SODIUM
     Indication: SEIZURE
     Dosage: 100 MG, 3X/DAY (100MG, 2 IN THE MORNING, 1 CAPSULE BY MOUTH EVERY EVENING OR AT LATE AFTERNOON)
     Route: 048

REACTIONS (5)
  - Loss of consciousness [Recovered/Resolved]
  - Drug ineffective [Unknown]
  - Malaise [Unknown]
  - Tremor [Recovered/Resolved]
  - Intentional product use issue [Unknown]

NARRATIVE: CASE EVENT DATE: 2018
